FAERS Safety Report 7461924 (Version 9)
Quarter: 2014Q4

REPORT INFORMATION
  Report Type: Spontaneous
  Country: US (occurrence: US)
  Receive Date: 20100709
  Receipt Date: 20141219
  Transmission Date: 20150529
  Serious: Yes (Other)
  Sender: FDA-Public Use
  Company Number: US-ROCHE-691747

PATIENT
  Age: 15 Year
  Sex: Male
  Weight: 83.9 kg

DRUGS (7)
  1. ACCUTANE [Suspect]
     Active Substance: ISOTRETINOIN
     Indication: ACNE
     Route: 065
     Dates: start: 20050302, end: 20050508
  2. BENZOYL PEROXIDE WASH [Concomitant]
     Active Substance: BENZOYL PEROXIDE
     Indication: ACNE
  3. BENZOYL PEROXIDE/CLINDAMYCIN [Concomitant]
     Indication: ACNE
  4. SOTRET [Suspect]
     Active Substance: ISOTRETINOIN
     Indication: ACNE
     Dosage: STRENGTH: 20 MG AND 40 MG
     Route: 048
  5. SOTRET [Suspect]
     Active Substance: ISOTRETINOIN
     Route: 048
     Dates: start: 200502, end: 20050302
  6. SOTRET [Suspect]
     Active Substance: ISOTRETINOIN
     Route: 048
     Dates: start: 20050516, end: 20050616
  7. DIFFERIN GEL [Concomitant]
     Active Substance: ADAPALENE
     Indication: ACNE

REACTIONS (9)
  - Cheilitis [Unknown]
  - Lip dry [Unknown]
  - Ankylosing spondylitis [Unknown]
  - Inflammatory bowel disease [Unknown]
  - Sacroiliitis [Unknown]
  - Anal fissure [Unknown]
  - Colitis [Unknown]
  - Colitis ulcerative [Unknown]
  - Blood triglycerides increased [Recovered/Resolved]

NARRATIVE: CASE EVENT DATE: 20050302
